FAERS Safety Report 8241061-1 (Version None)
Quarter: 2012Q1

REPORT INFORMATION
  Report Type: 
  Country: None (occurrence: None)
  Receive Date: 20120314
  Receipt Date: 20111116
  Transmission Date: 20120608
  Serious: No
  Sender: FDA-Public Use
  Company Number: E7389-01809-SPO-US

PATIENT
  Sex: Female

DRUGS (1)
  1. HALAVEN [Suspect]
     Dosage: INTRAVENOUS
     Route: 042
     Dates: end: 20110101

REACTIONS (1)
  - STOMATITIS [None]
